FAERS Safety Report 5608661-6 (Version None)
Quarter: 2008Q1

REPORT INFORMATION
  Report Type: 
  Country: None (occurrence: None)
  Receive Date: 20080131
  Receipt Date: 20080118
  Transmission Date: 20080703
  Serious: Yes (Other)
  Sender: FDA-Public Use
  Company Number: US-PFIZER INC-2008006406

PATIENT
  Sex: Female
  Weight: 86.363 kg

DRUGS (7)
  1. LYRICA [Suspect]
     Indication: PAIN
  2. ALBUTEROL [Concomitant]
  3. DIAZEPAM [Concomitant]
  4. PROZAC [Concomitant]
  5. OXYCONTIN [Concomitant]
  6. OXYCODONE [Concomitant]
  7. NORCO [Concomitant]

REACTIONS (1)
  - ILEUS [None]
